FAERS Safety Report 22541645 (Version 2)
Quarter: 2023Q2

REPORT INFORMATION
  Report Type: Report from Study
  Country: US (occurrence: US)
  Receive Date: 20230609
  Receipt Date: 20230622
  Transmission Date: 20230722
  Serious: Yes (Other)
  Sender: FDA-Public Use
  Company Number: US-TEVA-2023-US-2894474

PATIENT
  Age: 20 Year
  Sex: Female

DRUGS (4)
  1. CLARAVIS [Suspect]
     Active Substance: ISOTRETINOIN
     Indication: Product used for unknown indication
     Dosage: 20 MILLIGRAM DAILY; 10MG
     Route: 065
     Dates: start: 20230427, end: 202305
  2. CLARAVIS [Suspect]
     Active Substance: ISOTRETINOIN
     Dosage: 20 MG
     Route: 065
  3. CLARAVIS [Suspect]
     Active Substance: ISOTRETINOIN
     Route: 065
     Dates: start: 202203, end: 2022
  4. CLARAVIS [Suspect]
     Active Substance: ISOTRETINOIN
     Dosage: 10 MG

REACTIONS (9)
  - Unintended pregnancy [Unknown]
  - Chest pain [Not Recovered/Not Resolved]
  - Headache [Recovered/Resolved]
  - Abdominal pain [Recovered/Resolved]
  - Dyspnoea [Recovered/Resolved]
  - Acne [Not Recovered/Not Resolved]
  - Papule [Not Recovered/Not Resolved]
  - Scar [Not Recovered/Not Resolved]
  - Nodule [Not Recovered/Not Resolved]

NARRATIVE: CASE EVENT DATE: 20220301
